FAERS Safety Report 13590034 (Version 1)
Quarter: 2017Q2

REPORT INFORMATION
  Report Type: Spontaneous
  Country: US (occurrence: US)
  Receive Date: 20170528
  Receipt Date: 20170528
  Transmission Date: 20170830
  Serious: No
  Sender: FDA-Public Use
  Company Number: None

PATIENT
  Age: 32 Year
  Sex: Female
  Weight: 72.45 kg

DRUGS (5)
  1. IBUPROFEN. [Concomitant]
     Active Substance: IBUPROFEN
  2. AMOXICILLIN. [Suspect]
     Active Substance: AMOXICILLIN
     Indication: INFECTION PROPHYLAXIS
     Dosage: ?          QUANTITY:21 CAPSULE(S);?
     Route: 048
     Dates: start: 20170525, end: 20170528
  3. VITAMIN C [Concomitant]
     Active Substance: ASCORBIC ACID
  4. AMOXICILLIN. [Suspect]
     Active Substance: AMOXICILLIN
     Indication: TOOTH EXTRACTION
     Dosage: ?          QUANTITY:21 CAPSULE(S);?
     Route: 048
     Dates: start: 20170525, end: 20170528
  5. JOLIVETTE [Concomitant]
     Active Substance: NORETHINDRONE

REACTIONS (1)
  - Diarrhoea [None]

NARRATIVE: CASE EVENT DATE: 20170527
